FAERS Safety Report 17818101 (Version 1)
Quarter: 2020Q2

REPORT INFORMATION
  Report Type: Report from Study
  Country: CA (occurrence: CA)
  Receive Date: 20200522
  Receipt Date: 20200522
  Transmission Date: 20200714
  Serious: Yes (Death)
  Sender: FDA-Public Use
  Company Number: CA-ASTRAZENECA-2020SE66095

PATIENT
  Sex: Female

DRUGS (6)
  1. METOPROLOL. [Concomitant]
     Active Substance: METOPROLOL
  2. IBRANCE [Concomitant]
     Active Substance: PALBOCICLIB
  3. XARELTO [Concomitant]
     Active Substance: RIVAROXABAN
  4. XGEVA [Concomitant]
     Active Substance: DENOSUMAB
  5. FASLODEX [Suspect]
     Active Substance: FULVESTRANT
     Indication: BREAST CANCER METASTATIC
     Route: 030
     Dates: start: 20171031
  6. XALATAN [Concomitant]
     Active Substance: LATANOPROST

REACTIONS (1)
  - Death [Fatal]
